FAERS Safety Report 23293813 (Version 5)
Quarter: 2024Q2

REPORT INFORMATION
  Report Type: Spontaneous
  Country: SK (occurrence: SK)
  Receive Date: 20231213
  Receipt Date: 20240514
  Transmission Date: 20240716
  Serious: Yes (Other)
  Sender: FDA-Public Use
  Company Number: SK-MYLANLABS-2023M1122702

PATIENT
  Age: 34 Year
  Sex: Male

DRUGS (28)
  1. LACOSAMIDE [Suspect]
     Active Substance: LACOSAMIDE
     Indication: Partial seizures
     Dosage: UNK
     Route: 065
  2. PREGABALIN [Suspect]
     Active Substance: PREGABALIN
     Indication: Partial seizures
     Dosage: UNK
     Route: 065
  3. TOPIRAMATE [Suspect]
     Active Substance: TOPIRAMATE
     Indication: Partial seizures
     Dosage: UNK
     Route: 065
  4. LEVETIRACETAM [Suspect]
     Active Substance: LEVETIRACETAM
     Indication: Partial seizures
     Dosage: 4000 MILLIGRAM, QD
     Route: 065
     Dates: start: 202209
  5. LEVETIRACETAM [Suspect]
     Active Substance: LEVETIRACETAM
     Indication: Focal dyscognitive seizures
     Dosage: 4000 MILLIGRAM, QD
     Route: 048
     Dates: start: 202210
  6. LEVETIRACETAM [Suspect]
     Active Substance: LEVETIRACETAM
     Indication: Partial seizures with secondary generalisation
     Dosage: UNK
     Route: 065
  7. ZONISAMIDE [Suspect]
     Active Substance: ZONISAMIDE
     Indication: Partial seizures
     Dosage: UNK
     Route: 065
  8. LAMOTRIGINE [Suspect]
     Active Substance: LAMOTRIGINE
     Indication: Partial seizures
     Dosage: UNK
     Route: 065
  9. VALPROATE SODIUM [Suspect]
     Active Substance: VALPROATE SODIUM
     Indication: Partial seizures
     Dosage: 3500 MILLIGRAM, QD
     Route: 065
  10. VALPROATE SODIUM [Suspect]
     Active Substance: VALPROATE SODIUM
     Indication: Partial seizures with secondary generalisation
     Dosage: 1000-0-750 MG
     Route: 048
     Dates: start: 202210
  11. VALPROATE SODIUM [Suspect]
     Active Substance: VALPROATE SODIUM
     Indication: Focal dyscognitive seizures
     Dosage: UNK
     Route: 065
  12. PHENYTOIN [Suspect]
     Active Substance: PHENYTOIN
     Indication: Partial seizures
     Dosage: 500 MILLIGRAM, QD
     Route: 065
     Dates: start: 202209
  13. PHENYTOIN [Suspect]
     Active Substance: PHENYTOIN
     Indication: Partial seizures with secondary generalisation
     Dosage: 400 MILLIGRAM, QD
     Route: 065
  14. PHENYTOIN [Suspect]
     Active Substance: PHENYTOIN
     Indication: Focal dyscognitive seizures
     Dosage: 150-100-150 MG
     Route: 048
     Dates: start: 202210
  15. PHENYTOIN [Suspect]
     Active Substance: PHENYTOIN
     Dosage: UNK
     Route: 065
  16. CLOBAZAM [Suspect]
     Active Substance: CLOBAZAM
     Indication: Partial seizures
     Dosage: 30 MILLIGRAM, QD
     Route: 065
     Dates: start: 202209
  17. CLOBAZAM [Suspect]
     Active Substance: CLOBAZAM
     Indication: Seizure
     Dosage: 20 MILLIGRAM, QD
     Route: 065
  18. CLOBAZAM [Suspect]
     Active Substance: CLOBAZAM
     Indication: Focal dyscognitive seizures
     Dosage: 30 MILLIGRAM, QD
     Route: 048
     Dates: start: 202210
  19. CLOBAZAM [Suspect]
     Active Substance: CLOBAZAM
     Indication: Partial seizures with secondary generalisation
     Dosage: UNK
     Route: 065
  20. CENOBAMATE [Suspect]
     Active Substance: CENOBAMATE
     Indication: Generalised tonic-clonic seizure
     Dosage: 400 MILLIGRAM, QD (INCREASING DOSE)
     Route: 048
     Dates: start: 202209
  21. CENOBAMATE [Suspect]
     Active Substance: CENOBAMATE
     Indication: Partial seizures with secondary generalisation
     Dosage: UNK
     Route: 048
     Dates: start: 202210
  22. CENOBAMATE [Suspect]
     Active Substance: CENOBAMATE
     Indication: Focal dyscognitive seizures
  23. CARBAMAZEPINE [Suspect]
     Active Substance: CARBAMAZEPINE
     Indication: Partial seizures
     Dosage: UNK
     Route: 065
  24. CLONAZEPAM [Suspect]
     Active Substance: CLONAZEPAM
     Indication: Partial seizures
     Dosage: UNK
     Route: 065
  25. EZOGABINE [Suspect]
     Active Substance: EZOGABINE
     Indication: Partial seizures
     Dosage: UNK
     Route: 065
  26. PERAMPANEL [Concomitant]
     Active Substance: PERAMPANEL
     Indication: Partial seizures
     Dosage: UNK
     Route: 065
  27. BRIVARACETAM [Concomitant]
     Active Substance: BRIVARACETAM
     Indication: Partial seizures
     Dosage: UNK
     Route: 065
  28. PHENYTOIN [Concomitant]
     Active Substance: PHENYTOIN
     Indication: Partial seizures
     Dosage: 400 MILLIGRAM, QD
     Route: 065

REACTIONS (10)
  - Electroencephalogram abnormal [Recovered/Resolved]
  - Sedation complication [Recovered/Resolved]
  - Confusional state [Recovered/Resolved]
  - Multiple-drug resistance [Unknown]
  - Seizure [Recovering/Resolving]
  - Drug ineffective [Unknown]
  - Off label use [Not Recovered/Not Resolved]
  - Overdose [Not Recovered/Not Resolved]
  - Hyperammonaemia [Recovered/Resolved]
  - Sedation [Recovered/Resolved]
